FAERS Safety Report 20340335 (Version 6)
Quarter: 2023Q2

REPORT INFORMATION
  Report Type: Report from Study
  Country: GB (occurrence: None)
  Receive Date: 20220117
  Receipt Date: 20230501
  Transmission Date: 20230721
  Serious: Yes (Hospitalization)
  Sender: FDA-Public Use
  Company Number: GB-ROCHE-2997279

PATIENT
  Age: 80 Year
  Sex: Female

DRUGS (7)
  1. OBINUTUZUMAB [Suspect]
     Active Substance: OBINUTUZUMAB
     Indication: Chronic lymphocytic leukaemia
     Route: 042
     Dates: start: 20170307, end: 20170307
  2. OBINUTUZUMAB [Suspect]
     Active Substance: OBINUTUZUMAB
     Route: 042
     Dates: start: 20170725, end: 20170725
  3. ACALABRUTINIB [Suspect]
     Active Substance: ACALABRUTINIB
     Indication: Chronic lymphocytic leukaemia
     Dosage: CYCLE 1 DAY 1, 09/FEB/2017, 10/FEB/2017, 19/FEB/2017, 20/FEB/2017, 07/MAR/2017, 16/MAR/2017, 17/MAR/
     Route: 048
     Dates: start: 20170207
  4. ACALABRUTINIB [Suspect]
     Active Substance: ACALABRUTINIB
     Route: 048
     Dates: start: 20220125, end: 20220227
  5. ALLOPURINOL [Concomitant]
     Active Substance: ALLOPURINOL
     Dates: start: 2017
  6. PREGABALIN [Concomitant]
     Active Substance: PREGABALIN
     Indication: Carpal tunnel syndrome
     Dates: start: 2018
  7. ACETAMINOPHEN [Concomitant]
     Active Substance: ACETAMINOPHEN
     Indication: Neck pain
     Dates: start: 2020

REACTIONS (2)
  - Atrioventricular block [Recovered/Resolved]
  - COVID-19 [Recovered/Resolved]

NARRATIVE: CASE EVENT DATE: 20211227
